FAERS Safety Report 9525705 (Version 1)
Quarter: 2013Q1

REPORT INFORMATION
  Report Type: Spontaneous
  Country: US (occurrence: None)
  Receive Date: 20130314
  Receipt Date: 20130314
  Transmission Date: 20140127
  Serious: No
  Sender: FDA-Public Use
  Company Number: 1212USA005530

PATIENT
  Age: 62 Year
  Sex: Male

DRUGS (3)
  1. RIBAVIRIN [Suspect]
     Indication: HEPATITIS C
     Dates: start: 20121008
  2. VICTRELIS [Suspect]
     Indication: HEPATITIS C
  3. PEGASYS (PEGINTERFERON ALFA-2A) [Concomitant]

REACTIONS (5)
  - Nausea [None]
  - Gastrointestinal disorder [None]
  - Rash [None]
  - Pruritus [None]
  - Oropharyngeal pain [None]
